FAERS Safety Report 13290958 (Version 2)
Quarter: 2017Q1

REPORT INFORMATION
  Report Type: Report from Study
  Country: US (occurrence: US)
  Receive Date: 20170302
  Receipt Date: 20170322
  Transmission Date: 20170428
  Serious: Yes (Other)
  Sender: FDA-Public Use
  Company Number: US-MALLINCKRODT-T201700489

PATIENT
  Age: 49 Year
  Sex: Female

DRUGS (2)
  1. REPOSITORY CORTICOTROPIN INJECTION [Suspect]
     Active Substance: CORTICOTROPIN
     Indication: SARCOIDOSIS
     Dosage: 40 UNITS / .5 ML, 2 TIMES PER WEEK,  TUESDAY AND SATURDAY
     Route: 030
     Dates: start: 20151213
  2. ATIVAN [Concomitant]
     Active Substance: LORAZEPAM

REACTIONS (11)
  - Ligament rupture [Not Recovered/Not Resolved]
  - Ear infection [Not Recovered/Not Resolved]
  - Gastric pH decreased [Unknown]
  - Rash [Not Recovered/Not Resolved]
  - Drug dose omission [Unknown]
  - Poor peripheral circulation [Not Recovered/Not Resolved]
  - Dyspnoea [Not Recovered/Not Resolved]
  - Pain [Not Recovered/Not Resolved]
  - Depression [Not Recovered/Not Resolved]
  - Bladder prolapse [Not Recovered/Not Resolved]
  - Insomnia [Not Recovered/Not Resolved]

NARRATIVE: CASE EVENT DATE: 20161130
